FAERS Safety Report 9311967 (Version 2)
Quarter: 2013Q3

REPORT INFORMATION
  Report Type: Report from Study
  Country: CN (occurrence: CN)
  Receive Date: 20130528
  Receipt Date: 20130801
  Transmission Date: 20140515
  Serious: Yes (Other)
  Sender: FDA-Public Use
  Company Number: CN-PFIZER INC-2013158182

PATIENT
  Age: 49 Year
  Sex: Female

DRUGS (3)
  1. CISPLATIN [Suspect]
     Indication: GESTATIONAL TROPHOBLASTIC TUMOUR
     Dosage: 20 MG/M2, CYCLIC (DAYS 1-5)
     Route: 041
  2. ETOPOSIDE [Suspect]
     Indication: GESTATIONAL TROPHOBLASTIC TUMOUR
     Dosage: 100 MG/M2, CYCLIC (DAYS 1-5)
     Route: 041
  3. BLEOMYCIN [Suspect]
     Indication: GESTATIONAL TROPHOBLASTIC TUMOUR
     Dosage: 15 MG, CYCLIC (DAYS 1-3)
     Route: 042

REACTIONS (3)
  - Bone marrow failure [Unknown]
  - Pulmonary fibrosis [Unknown]
  - Drug resistance [Unknown]
